FAERS Safety Report 18449758 (Version 1)
Quarter: 2020Q4

REPORT INFORMATION
  Report Type: Spontaneous
  Country: None (occurrence: US)
  Receive Date: 20201102
  Receipt Date: 20201102
  Transmission Date: 20210114
  Serious: Yes (Life-Threatening, Hospitalization, Other)
  Sender: FDA-Public Use
  Company Number: US-ORION CORPORATION ORION PHARMA-20_00011499

PATIENT
  Age: 74 Year
  Sex: Male

DRUGS (2)
  1. METHOTREXATE. [Suspect]
     Active Substance: METHOTREXATE
     Indication: RHEUMATOID ARTHRITIS
     Route: 065
  2. PREDNISONE. [Suspect]
     Active Substance: PREDNISONE
     Indication: RHEUMATOID ARTHRITIS
     Route: 065

REACTIONS (9)
  - Streptococcus test positive [Unknown]
  - Dysphagia [Unknown]
  - Bronchopleural fistula [Unknown]
  - Atrial fibrillation [Unknown]
  - Infectious pleural effusion [Unknown]
  - Pleural effusion [Unknown]
  - Aspergillus infection [Unknown]
  - Neisseria test positive [Unknown]
  - Pneumothorax [Unknown]
